FAERS Safety Report 13162092 (Version 1)
Quarter: 2017Q1

REPORT INFORMATION
  Report Type: Spontaneous
  Country: US (occurrence: US)
  Receive Date: 20170126
  Receipt Date: 20170126
  Transmission Date: 20170428
  Serious: No
  Sender: FDA-Public Use
  Company Number: None

PATIENT
  Age: 53 Year
  Sex: Male

DRUGS (1)
  1. COSENTYX [Suspect]
     Active Substance: SECUKINUMAB
     Dosage: Q4W
     Route: 058
     Dates: start: 20161222

REACTIONS (2)
  - Nephropathy [None]
  - Influenza like illness [None]

NARRATIVE: CASE EVENT DATE: 20161215
